FAERS Safety Report 18144778 (Version 3)
Quarter: 2020Q4

REPORT INFORMATION
  Report Type: Spontaneous
  Country: US (occurrence: US)
  Receive Date: 20200813
  Receipt Date: 20201125
  Transmission Date: 20210113
  Serious: Yes (Other)
  Sender: FDA-Public Use
  Company Number: US-TAKEDA-2020TUS034402

PATIENT
  Sex: Male
  Weight: 92 kg

DRUGS (2)
  1. NINLARO [Suspect]
     Active Substance: IXAZOMIB CITRATE
     Indication: PLASMA CELL MYELOMA
     Dosage: 2.3 MILLIGRAM
     Route: 048
     Dates: start: 20200701
  2. POMALYST [Concomitant]
     Active Substance: POMALIDOMIDE
     Dosage: 1 MILLIGRAM, QD
     Route: 048

REACTIONS (4)
  - Dementia Alzheimer^s type [Unknown]
  - Mood swings [Unknown]
  - Fatigue [Unknown]
  - Decreased appetite [Recovering/Resolving]
